FAERS Safety Report 20109499 (Version 2)
Quarter: 2021Q4

REPORT INFORMATION
  Report Type: Spontaneous
  Country: CA (occurrence: CA)
  Receive Date: 20211124
  Receipt Date: 20211221
  Transmission Date: 20220303
  Serious: Yes (Other)
  Sender: FDA-Public Use
  Company Number: CA-AMERICAN REGENT INC-2021003095

PATIENT
  Age: 74 Year
  Sex: Female

DRUGS (2)
  1. VENOFER [Suspect]
     Active Substance: IRON SUCROSE
     Indication: Product used for unknown indication
     Dosage: 500 MG
     Route: 065
     Dates: start: 20210607, end: 20210607
  2. EPIPEN [Concomitant]
     Active Substance: EPINEPHRINE
     Indication: Allergy prophylaxis
     Dosage: UNK, ^SHE CARRIES AN EPIPEN FOR AN UNKNOWN ALLERGEN^
     Route: 065

REACTIONS (5)
  - Pallor [Unknown]
  - Skin burning sensation [Unknown]
  - Erythema [Unknown]
  - Hyperhidrosis [Unknown]
  - Nausea [Unknown]

NARRATIVE: CASE EVENT DATE: 20210607
